FAERS Safety Report 18370866 (Version 1)
Quarter: 2020Q4

REPORT INFORMATION
  Report Type: Spontaneous
  Country: US (occurrence: US)
  Receive Date: 20201012
  Receipt Date: 20201012
  Transmission Date: 20210114
  Serious: Yes (Death, Other)
  Sender: FDA-Public Use
  Company Number: US-SA-2020SA205961

PATIENT

DRUGS (11)
  1. DULOXETINE. [Concomitant]
     Active Substance: DULOXETINE
     Dosage: UNK
     Route: 048
     Dates: start: 20200304
  2. PREDNISONE. [Concomitant]
     Active Substance: PREDNISONE
     Dosage: UNK
     Route: 048
     Dates: start: 20200304
  3. FENTANYL. [Concomitant]
     Active Substance: FENTANYL
     Dosage: UNK, 50 MCG/HOUR
     Dates: start: 20200304
  4. OXYBUTYNIN CHLORIDE. [Concomitant]
     Active Substance: OXYBUTYNIN CHLORIDE
     Dosage: 2 DF, QD
     Route: 048
     Dates: start: 20200304
  5. CYCLOBENZAPRINE. [Concomitant]
     Active Substance: CYCLOBENZAPRINE
     Dosage: 1 DF, TID
     Route: 048
     Dates: start: 20200304
  6. IRBESARTAN. [Concomitant]
     Active Substance: IRBESARTAN
     Dosage: UNK
     Route: 048
     Dates: start: 20200304
  7. AUBAGIO [Suspect]
     Active Substance: TERIFLUNOMIDE
     Indication: MULTIPLE SCLEROSIS
     Dosage: 14 MG, QD
     Route: 048
     Dates: start: 2018
  8. ERGOCALCIFEROL. [Concomitant]
     Active Substance: ERGOCALCIFEROL
     Dosage: 1 DF, QW
     Route: 048
     Dates: start: 20200304
  9. ROSUVASTATIN. [Concomitant]
     Active Substance: ROSUVASTATIN
     Dosage: UNK
     Route: 048
     Dates: start: 20200304
  10. TIZANIDINE. [Concomitant]
     Active Substance: TIZANIDINE
     Dosage: 2 DF, TID
     Route: 048
     Dates: start: 20200304
  11. OXYCODONE [Concomitant]
     Active Substance: OXYCODONE
     Dosage: UNK
     Route: 048
     Dates: start: 20200304

REACTIONS (14)
  - Death [Fatal]
  - Fall [Recovering/Resolving]
  - Hypoaesthesia [Unknown]
  - Muscle spasticity [Unknown]
  - Progressive multiple sclerosis [Unknown]
  - Bladder disorder [Unknown]
  - Urinary tract disorder [Unknown]
  - Myalgia [Unknown]
  - Rash erythematous [Unknown]
  - Gait disturbance [Unknown]
  - Condition aggravated [Unknown]
  - Cognitive disorder [Not Recovered/Not Resolved]
  - Muscle spasms [Unknown]
  - Oedema peripheral [Unknown]
